FAERS Safety Report 12130447 (Version 1)
Quarter: 2016Q1

REPORT INFORMATION
  Report Type: Spontaneous
  Country: US (occurrence: None)
  Receive Date: 20160229
  Receipt Date: 20160229
  Transmission Date: 20160526
  Serious: No
  Sender: FDA-Public Use
  Company Number: None

PATIENT
  Age: 72 Year
  Sex: Male

DRUGS (9)
  1. XELJANZ [Suspect]
     Active Substance: TOFACITINIB CITRATE
     Indication: CROHN^S DISEASE
     Route: 048
     Dates: start: 20151230
  2. IRBESARTAN. [Concomitant]
     Active Substance: IRBESARTAN
  3. CHOLESTYRAM [Concomitant]
     Active Substance: CHOLESTYRAMINE
  4. TERAZOSIN [Concomitant]
     Active Substance: TERAZOSIN\TERAZOSIN HYDROCHLORIDE
  5. DUTASTERIDE. [Concomitant]
     Active Substance: DUTASTERIDE
  6. AMILODIPINE [Concomitant]
  7. AVODART [Concomitant]
     Active Substance: DUTASTERIDE
  8. VIAGRA [Concomitant]
     Active Substance: SILDENAFIL CITRATE
  9. PANTOPRAZOLE [Concomitant]
     Active Substance: PANTOPRAZOLE SODIUM

REACTIONS (2)
  - Memory impairment [None]
  - Drug dose omission [None]

NARRATIVE: CASE EVENT DATE: 201602
